FAERS Safety Report 8970070 (Version 1)
Quarter: 2012Q4

REPORT INFORMATION
  Report Type: 
  Country: US (occurrence: US)
  Receive Date: 20121218
  Receipt Date: 20121218
  Transmission Date: 20130627
  Serious: No
  Sender: FDA-Public Use
  Company Number: US-BRISTOL-MYERS SQUIBB COMPANY-16214330

PATIENT
  Sex: Female

DRUGS (2)
  1. ABILIFY [Suspect]
  2. LAMICTAL [Suspect]
     Dosage: For 4 yrs

REACTIONS (2)
  - Tongue disorder [Not Recovered/Not Resolved]
  - Tic [Not Recovered/Not Resolved]
